FAERS Safety Report 8438038-X (Version None)
Quarter: 2012Q2

REPORT INFORMATION
  Report Type: 
  Country: None (occurrence: None)
  Receive Date: 20120614
  Receipt Date: 20120607
  Transmission Date: 20120825
  Serious: No
  Sender: FDA-Public Use
  Company Number: US-B.I. PHARMACEUTICALS,INC./RIDGEFIELD-2012-BP-13264BP

PATIENT
  Sex: Female

DRUGS (7)
  1. GABAPENTIN [Concomitant]
  2. SIMVASTATIN [Concomitant]
  3. SPIRIVA [Suspect]
  4. NORTRIPTYLINE HYDROCHLORIDE [Concomitant]
  5. FLUTICASONE FUROATE [Concomitant]
  6. OMEPRAZOLE [Concomitant]
  7. OXYBUTYNIN [Concomitant]

REACTIONS (1)
  - BACK DISORDER [None]
